FAERS Safety Report 6611708-1 (Version None)
Quarter: 2010Q1

REPORT INFORMATION
  Report Type: 
  Country: None (occurrence: None)
  Receive Date: 20100301
  Receipt Date: 20100301
  Transmission Date: 20100710
  Serious: No
  Sender: FDA-Public Use
  Company Number: None

PATIENT
  Age: 69 Year
  Sex: Female

DRUGS (9)
  1. HUMALOG [Suspect]
     Indication: DIABETES MELLITUS
     Dosage: INJECT 10 UNITS TWICE A DAY BEFORE MEALS
  2. LIPITOR [Concomitant]
  3. COREG [Concomitant]
  4. LASIX [Concomitant]
  5. TIAZAC [Concomitant]
  6. CLONIDINE [Concomitant]
  7. COZAAR [Concomitant]
  8. GLIPIZIDE [Concomitant]
  9. LANTUS PEN [Concomitant]

REACTIONS (2)
  - BLOOD GLUCOSE INCREASED [None]
  - PRODUCT CONTAMINATION [None]
